FAERS Safety Report 6708174-4 (Version None)
Quarter: 2010Q2

REPORT INFORMATION
  Report Type: 
  Country: None (occurrence: None)
  Receive Date: 20100503
  Receipt Date: 20090831
  Transmission Date: 20101027
  Serious: No
  Sender: FDA-Public Use
  Company Number: US-ASTRAZENECA-2009SE10833

PATIENT
  Age: 781 Month
  Sex: Male
  Weight: 131.5 kg

DRUGS (5)
  1. NEXIUM [Suspect]
     Indication: GASTROOESOPHAGEAL REFLUX DISEASE
     Dates: start: 20070101
  2. CRESTOR [Suspect]
     Route: 048
  3. NORVASC [Concomitant]
  4. BLOOD PRESSURE MEDICATION [Concomitant]
  5. DIOVAN [Concomitant]

REACTIONS (3)
  - BACK PAIN [None]
  - GROIN PAIN [None]
  - HAEMOGLOBIN DECREASED [None]
